FAERS Safety Report 7749979 (Version 4)
Quarter: 2013Q4

REPORT INFORMATION
  Report Type: Spontaneous
  Country: US (occurrence: US)
  Receive Date: 20110106
  Receipt Date: 20131206
  Transmission Date: 20140711
  Serious: Yes (Hospitalization, Other)
  Sender: FDA-Public Use
  Company Number: US-BAYER-2011-000975

PATIENT
  Age: 26 Year
  Sex: Female
  Weight: 81.63 kg

DRUGS (8)
  1. YAZ [Suspect]
     Indication: ACNE
     Dosage: UNK UNK, QD
     Dates: start: 2004, end: 2009
  2. YAZ [Suspect]
     Indication: CONTRACEPTION
  3. YASMIN [Suspect]
     Indication: ACNE
     Dosage: UNK
     Dates: start: 2004, end: 2009
  4. YASMIN [Suspect]
     Indication: CONTRACEPTION
  5. OCELLA [Suspect]
     Indication: ACNE
     Dosage: UNK
     Dates: start: 2004, end: 2009
  6. OCELLA [Suspect]
     Indication: CONTRACEPTION
  7. SULFAMETHOXAZOLE W/TRIMETHOPRIM [Concomitant]
     Dosage: UNK
     Dates: start: 20090826
  8. CEPHALEXIN [Concomitant]
     Dosage: 500 MG
     Dates: start: 20090827

REACTIONS (6)
  - Injury [None]
  - Gallbladder injury [None]
  - Pulmonary embolism [None]
  - Pericarditis [None]
  - Pneumonia [None]
  - Pain [None]
